FAERS Safety Report 9009084 (Version 2)
Quarter: 2013Q1

REPORT INFORMATION
  Report Type: Spontaneous
  Country: US (occurrence: US)
  Receive Date: 20130111
  Receipt Date: 20130121
  Transmission Date: 20140127
  Serious: Yes (Other)
  Sender: FDA-Public Use
  Company Number: US-JNJFOC-20121206083

PATIENT
  Age: 47 Year
  Sex: Male

DRUGS (2)
  1. IBUPROFEN [Suspect]
     Indication: TOOTHACHE
     Route: 048
  2. CETIRIZINE [Concomitant]
     Route: 065

REACTIONS (4)
  - Skin necrosis [Unknown]
  - Blister [Recovering/Resolving]
  - Drug eruption [Recovering/Resolving]
  - Staphylococcal infection [Recovering/Resolving]
